FAERS Safety Report 5911775-4 (Version None)
Quarter: 2008Q4

REPORT INFORMATION
  Report Type: 
  Country: None (occurrence: None)
  Receive Date: 20081003
  Receipt Date: 20080917
  Transmission Date: 20090506
  Serious: Yes (Other)
  Sender: FDA-Public Use
  Company Number: CHPA2008GB14944

PATIENT
  Age: 53 Year
  Sex: Male

DRUGS (2)
  1. NICOTINELL COATED GUM 2 MG (NCH) (NICOTINE) CHEWABLE GUM [Suspect]
     Dosage: 2 MG, 18 GUMS QD, BUCCAL; 2 MG, 14 GUMS QD, BUCCAL
     Route: 002
     Dates: start: 20040101
  2. NICOTINELL GUM (NCH) (NICOTINE) CHEWABLE GUM [Suspect]
     Dosage: 4 MG, 14 GUMS QD, BUCCAL
     Route: 002
     Dates: start: 20041206

REACTIONS (3)
  - DRUG DEPENDENCE [None]
  - INTENTIONAL DRUG MISUSE [None]
  - OVERDOSE [None]
